FAERS Safety Report 24972040 (Version 1)
Quarter: 2025Q1

REPORT INFORMATION
  Report Type: Spontaneous
  Country: US (occurrence: US)
  Receive Date: 20250214
  Receipt Date: 20250214
  Transmission Date: 20250409
  Serious: No
  Sender: GALDERMA
  Company Number: US-GALDERMA-US2025001016

PATIENT

DRUGS (3)
  1. PROACTIV MD ADAPALENE ACNE TREATMENT [Suspect]
     Active Substance: ADAPALENE
     Indication: Acne
     Route: 061
     Dates: start: 2024, end: 2024
  2. Proactiv MD Ultra Gentle Cleanser [Concomitant]
     Indication: Product used for unknown indication
  3. COSMETICS [Concomitant]
     Active Substance: COSMETICS
     Indication: Product used for unknown indication

REACTIONS (2)
  - Skin irritation [Recovering/Resolving]
  - Rosacea [Recovering/Resolving]

NARRATIVE: CASE EVENT DATE: 20240101
